FAERS Safety Report 16239099 (Version 1)
Quarter: 2019Q2

REPORT INFORMATION
  Report Type: Spontaneous
  Country: US (occurrence: US)
  Receive Date: 20190425
  Receipt Date: 20190425
  Transmission Date: 20190711
  Serious: No
  Sender: FDA-Public Use
  Company Number: US-BIOMARINAP-US-2019-123256

PATIENT
  Age: 16 Year
  Sex: Female
  Weight: 66.21 kg

DRUGS (1)
  1. NAGLAZYME [Suspect]
     Active Substance: GALSULFASE
     Indication: PRODUCT USED FOR UNKNOWN INDICATION
     Dosage: 70 MILLIGRAM, QW
     Route: 042

REACTIONS (5)
  - Erythema [Recovering/Resolving]
  - Discomfort [Recovering/Resolving]
  - Feeling hot [Recovering/Resolving]
  - Extravasation [Recovering/Resolving]
  - Inflammation [Recovering/Resolving]

NARRATIVE: CASE EVENT DATE: 20190419
